FAERS Safety Report 10559973 (Version 2)
Quarter: 2014Q4

REPORT INFORMATION
  Report Type: Spontaneous
  Country: US (occurrence: None)
  Receive Date: 20141030
  Receipt Date: 20141222
  Transmission Date: 20150529
  Serious: Yes (Disabling, Other)
  Sender: FDA-Public Use
  Company Number: 2014-20586

PATIENT
  Age: 84 Year
  Sex: Male

DRUGS (8)
  1. OCUVITE /01053801/ (ASCORBIC ACID, RETINOL, TOCOPHEROL) [Concomitant]
  2. EYLEA [Suspect]
     Active Substance: AFLIBERCEPT
     Dosage: 0.5 MG MILLIGRAM (S), OS Q 6 WEEKS, INTRAOCULAR
     Route: 031
     Dates: start: 20140908, end: 20140908
  3. FISH OIL (FISH OIL) [Concomitant]
     Active Substance: FISH OIL
  4. ALLOPURINOL (ALLOPURINOL) [Concomitant]
     Active Substance: ALLOPURINOL
  5. CLONIDINE (CLONIDINE) [Concomitant]
     Active Substance: CLONIDINE
  6. CRESTOR [Concomitant]
     Active Substance: ROSUVASTATIN CALCIUM
  7. ASPIRIN (ACETYLSALICYLIC ACID) [Concomitant]
     Active Substance: ASPIRIN
  8. LISINOPRIL (LISINOPRIL) [Concomitant]
     Active Substance: LISINOPRIL

REACTIONS (4)
  - Blindness transient [None]
  - Visual acuity reduced [None]
  - Eye inflammation [None]
  - Hypopyon [None]

NARRATIVE: CASE EVENT DATE: 20140911
